FAERS Safety Report 18310500 (Version 3)
Quarter: 2021Q1

REPORT INFORMATION
  Report Type: Spontaneous
  Country: US (occurrence: US)
  Receive Date: 20200925
  Receipt Date: 20210122
  Transmission Date: 20210419
  Serious: No
  Sender: FDA-Public Use
  Company Number: US-GLAXOSMITHKLINE-US2020AMR188839

PATIENT
  Sex: Female

DRUGS (3)
  1. ZEJULA [Suspect]
     Active Substance: NIRAPARIB
     Indication: OVARIAN CANCER
     Dosage: 200 MG, QD
     Route: 048
     Dates: start: 20200908
  2. ZEJULA [Suspect]
     Active Substance: NIRAPARIB
     Dosage: 200 MG, QD
     Route: 048
  3. ZEJULA [Suspect]
     Active Substance: NIRAPARIB
     Dosage: 200 MG, QD
     Route: 048

REACTIONS (13)
  - Constipation [Not Recovered/Not Resolved]
  - Fatigue [Not Recovered/Not Resolved]
  - Ageusia [Unknown]
  - Nervousness [Unknown]
  - Palpitations [Not Recovered/Not Resolved]
  - Dyspepsia [Unknown]
  - Hyperhidrosis [Unknown]
  - Cough [Unknown]
  - Nightmare [Not Recovered/Not Resolved]
  - COVID-19 [Recovering/Resolving]
  - Poor quality sleep [Unknown]
  - Adverse drug reaction [Unknown]
  - Condition aggravated [Unknown]
